FAERS Safety Report 4607002-0 (Version None)
Quarter: 2005Q1

REPORT INFORMATION
  Report Type: 
  Country: None (occurrence: None)
  Receive Date: 20050309
  Receipt Date: 20050217
  Transmission Date: 20050727
  Serious: Yes (Hospitalization)
  Sender: FDA-Public Use
  Company Number: US-0503113696

PATIENT
  Age: 67 Year
  Sex: Male
  Weight: 81 kg

DRUGS (3)
  1. OLANZAPINE [Suspect]
     Indication: SCHIZOPHRENIA
     Dates: start: 20041025, end: 20050203
  2. BIFEPRUNOX [Suspect]
     Indication: SCHIZOPHRENIA
     Dates: start: 20041025, end: 20050203
  3. MULTI-VITAMIN [Concomitant]

REACTIONS (5)
  - BLOOD CHLORIDE DECREASED [None]
  - HYPERCALCAEMIA [None]
  - HYPERKALAEMIA [None]
  - HYPONATRAEMIA [None]
  - INAPPROPRIATE ANTIDIURETIC HORMONE SECRETION [None]
